FAERS Safety Report 18848917 (Version 1)
Quarter: 2021Q1

REPORT INFORMATION
  Report Type: Spontaneous
  Country: TZ (occurrence: TZ)
  Receive Date: 20210205
  Receipt Date: 20210205
  Transmission Date: 20210419
  Serious: Yes (Death)
  Sender: FDA-Public Use
  Company Number: NVSC2021TZ025376

PATIENT
  Sex: Male

DRUGS (1)
  1. GLIVEC [Suspect]
     Active Substance: IMATINIB MESYLATE
     Indication: GASTROINTESTINAL STROMAL TUMOUR
     Dosage: 400 MG (4 X 100MG TABLETS)
     Route: 065

REACTIONS (6)
  - Haematuria [Fatal]
  - Dyspnoea [Fatal]
  - Staphylococcus test positive [Fatal]
  - Hypotension [Fatal]
  - Oedema [Fatal]
  - Pleural effusion [Fatal]
